FAERS Safety Report 4511091-1 (Version None)
Quarter: 2004Q4

REPORT INFORMATION
  Report Type: 
  Country: None (occurrence: None)
  Receive Date: 20041015
  Receipt Date: 20040224
  Transmission Date: 20050328
  Serious: Yes (Other)
  Sender: FDA-Public Use
  Company Number: 2004007889

PATIENT
  Age: 42 Year
  Sex: Male
  Weight: 83.9154 kg

DRUGS (3)
  1. NEURONTIN [Suspect]
     Indication: NEUROPATHY
     Dosage: 900 MG (TID), ORAL
     Route: 048
     Dates: start: 20031201, end: 20031201
  2. PAROXETINE HCL [Concomitant]
  3. ZOLPIDEM TARTRATE [Concomitant]

REACTIONS (3)
  - ACCIDENTAL OVERDOSE [None]
  - DIPLOPIA [None]
  - ROAD TRAFFIC ACCIDENT [None]
